FAERS Safety Report 16479960 (Version 3)
Quarter: 2019Q3

REPORT INFORMATION
  Report Type: Report from Study
  Country: GB (occurrence: GB)
  Receive Date: 20190626
  Receipt Date: 20190705
  Transmission Date: 20191004
  Serious: Yes (Other)
  Sender: FDA-Public Use
  Company Number: GB-BAUSCH-BL-2019-018327

PATIENT
  Age: 73 Year
  Sex: Male

DRUGS (1)
  1. KYNTHEUM [Suspect]
     Active Substance: BRODALUMAB
     Indication: PSORIASIS
     Dosage: 210 MG AT WEEKS 0, 1, 2 AND 4 AND THEN EVERY 2 WEEKS
     Route: 058
     Dates: start: 20190507, end: 2019

REACTIONS (2)
  - Tuberculosis [Unknown]
  - Fatigue [Unknown]
